FAERS Safety Report 7114187-3 (Version None)
Quarter: 2010Q4

REPORT INFORMATION
  Report Type: 
  Country: None (occurrence: None)
  Receive Date: 20101119
  Receipt Date: 20101108
  Transmission Date: 20110411
  Serious: Yes (Hospitalization)
  Sender: FDA-Public Use
  Company Number: CH-PFIZER INC-CH-WYE-G06875910

PATIENT
  Age: 60 Year
  Sex: Female

DRUGS (10)
  1. EFFEXOR [Interacting]
     Indication: DEPRESSION
     Dosage: 225 MG, 1X/DAY
     Route: 048
     Dates: end: 20100901
  2. EFFEXOR [Interacting]
     Dosage: 150 MG, 1X/DAY
     Route: 048
     Dates: start: 20100901, end: 20100101
  3. EFFEXOR [Interacting]
     Dosage: 75 MG, 1X/DAY
     Route: 048
     Dates: start: 20100101
  4. INDERAL [Suspect]
     Dosage: 10 MG, 2X/DAY, SINCE LONG TIME
     Dates: end: 20100930
  5. PASPERTIN [Interacting]
     Dosage: 10 MG, 3X/DAY
     Route: 048
     Dates: start: 20100924, end: 20101001
  6. ALCOHOL [Suspect]
     Dosage: UNKNOWN DOSE
  7. ANXIOLIT [Concomitant]
     Dosage: 52.5 MG, 1X/DAY, SINCE LONG TIME
  8. SERETIDE [Concomitant]
     Dosage: 500 UG, 2X/DAY, SINCE LONG TIME
  9. NEXIUM [Concomitant]
     Dosage: 20 MG, 1X/DAY, SINCE LONG TIME
  10. ZOLPIDEM [Concomitant]
     Dosage: 15 MG, 1X/DAY, SINCE LONG TIME

REACTIONS (21)
  - ABDOMINAL PAIN [None]
  - ALCOHOL POISONING [None]
  - ANTIDEPRESSANT DRUG LEVEL INCREASED [None]
  - ASTHENIA [None]
  - DEPRESSED LEVEL OF CONSCIOUSNESS [None]
  - DRUG INTERACTION [None]
  - DRUG WITHDRAWAL SYNDROME [None]
  - FATIGUE [None]
  - GENERAL PHYSICAL HEALTH DETERIORATION [None]
  - HEPATIC STEATOSIS [None]
  - HEPATITIS ALCOHOLIC [None]
  - HYPERREFLEXIA [None]
  - HYPERTHERMIA [None]
  - HYPOTENSION [None]
  - NAUSEA [None]
  - NERVOUSNESS [None]
  - NYSTAGMUS [None]
  - SEROTONIN SYNDROME [None]
  - TACHYCARDIA [None]
  - TREMOR [None]
  - VERTIGO [None]
